FAERS Safety Report 6813627-4 (Version None)
Quarter: 2010Q3

REPORT INFORMATION
  Report Type: 
  Country: None (occurrence: None)
  Receive Date: 20100701
  Receipt Date: 20100622
  Transmission Date: 20110219
  Serious: Yes (Hospitalization)
  Sender: FDA-Public Use
  Company Number: FI-WYE-G06301610

PATIENT
  Age: 66 Year
  Sex: Male

DRUGS (6)
  1. RELISTOR [Suspect]
     Indication: CONSTIPATION
     Route: 058
     Dates: start: 20091001
  2. VEPESID [Concomitant]
     Dosage: UNSPESIFIED
     Dates: start: 20100101, end: 20100501
  3. PANADOL [Concomitant]
  4. TRILEPTAL [Concomitant]
  5. OXYCODONE HYDROCHLORIDE [Concomitant]
  6. DURAGESIC-100 [Concomitant]

REACTIONS (3)
  - C-REACTIVE PROTEIN INCREASED [None]
  - HAEMOGLOBIN DECREASED [None]
  - INFECTION [None]
